FAERS Safety Report 10696808 (Version 1)
Quarter: 2015Q1

REPORT INFORMATION
  Report Type: Other
  Country: US (occurrence: US)
  Receive Date: 20150108
  Receipt Date: 20150108
  Transmission Date: 20150721
  Serious: No
  Sender: FDA-Public Use
  Company Number: US-LUPIN PHARMACEUTICALS INC.-2014-01728

PATIENT
  Age: 2 Year
  Sex: Male

DRUGS (2)
  1. CEFDINIR. [Suspect]
     Active Substance: CEFDINIR
     Indication: EAR INFECTION
  2. CEFDINIR. [Suspect]
     Active Substance: CEFDINIR
     Indication: OROPHARYNGEAL PAIN
     Route: 065

REACTIONS (5)
  - Pallor [Unknown]
  - Asthenia [Unknown]
  - Depressed level of consciousness [Unknown]
  - Rash [Unknown]
  - Lethargy [Unknown]
